FAERS Safety Report 6736836-1 (Version None)
Quarter: 2010Q2

REPORT INFORMATION
  Report Type: 
  Country: None (occurrence: None)
  Receive Date: 20100521
  Receipt Date: 20100514
  Transmission Date: 20101027
  Serious: Yes (Life-Threatening, Hospitalization, Other)
  Sender: FDA-Public Use
  Company Number: US-ROCHE-683931

PATIENT
  Sex: Male
  Weight: 101.6 kg

DRUGS (11)
  1. BEVACIZUMAB [Suspect]
     Indication: METASTATIC RENAL CELL CARCINOMA
     Dosage: FREQUENCY: DAY1 AND DAY15 EACH CYCLE
     Route: 065
  2. TEMSIROLIMUS [Suspect]
     Indication: METASTATIC RENAL CELL CARCINOMA
     Dosage: FREQUENCY: DAY 1, DAY 8 AND DAY 15, 22 EACH CYCLE
     Route: 065
  3. NORVASC [Concomitant]
  4. CITALOPRAM [Concomitant]
  5. FLUTICASONE PROPIONATE [Concomitant]
     Dosage: FORM: NASAL SPRAY
  6. GEMFIBROZIL [Concomitant]
  7. SYNTHROID [Concomitant]
  8. LISINOPRIL [Concomitant]
  9. METOPROLOL TARTRATE [Concomitant]
     Route: 048
  10. COUMADIN [Concomitant]
  11. AMBIEN [Concomitant]

REACTIONS (13)
  - BRADYCARDIA [None]
  - CELLULITIS [None]
  - CHEST PAIN [None]
  - EXTRASYSTOLES [None]
  - HYPOCALCAEMIA [None]
  - HYPOTENSION [None]
  - INFECTION [None]
  - LEFT VENTRICULAR DYSFUNCTION [None]
  - PYREXIA [None]
  - STAPHYLOCOCCAL BACTERAEMIA [None]
  - SYNCOPE [None]
  - THROMBOPHLEBITIS [None]
  - VENTRICULAR ARRHYTHMIA [None]
